FAERS Safety Report 7727090-2 (Version None)
Quarter: 2011Q3

REPORT INFORMATION
  Report Type: 
  Country: None (occurrence: None)
  Receive Date: 20110902
  Receipt Date: 20110830
  Transmission Date: 20111222
  Serious: Yes (Hospitalization)
  Sender: FDA-Public Use
  Company Number: IT-BRISTOL-MYERS SQUIBB COMPANY-15967128

PATIENT
  Age: 87 Year
  Sex: Female

DRUGS (3)
  1. COUMADIN [Suspect]
     Indication: ATRIAL FIBRILLATION
     Dosage: INTERRUPTED DATE: 15JUL11.
     Dates: start: 20090801
  2. LOSAZID [Concomitant]
  3. CATAPRESAN [Concomitant]

REACTIONS (4)
  - WOUND [None]
  - FALL [None]
  - SUBDURAL HAEMATOMA [None]
  - SUBARACHNOID HAEMORRHAGE [None]
